FAERS Safety Report 13870072 (Version 1)
Quarter: 2017Q3

REPORT INFORMATION
  Report Type: Spontaneous
  Country: US (occurrence: US)
  Receive Date: 20170815
  Receipt Date: 20170815
  Transmission Date: 20171127
  Serious: No
  Sender: FDA-Public Use
  Company Number: US-SUNOVION-2017SUN003502

PATIENT
  Age: 21 Year
  Sex: Male
  Weight: 77.98 kg

DRUGS (3)
  1. LATUDA [Suspect]
     Active Substance: LURASIDONE HYDROCHLORIDE
     Dosage: 40 MG QD
     Route: 048
     Dates: start: 201707
  2. LATUDA [Suspect]
     Active Substance: LURASIDONE HYDROCHLORIDE
     Indication: PRODUCT USED FOR UNKNOWN INDICATION
     Dosage: 20 MG QD
     Route: 048
     Dates: start: 201707, end: 201707
  3. RISPERDAL [Concomitant]
     Active Substance: RISPERIDONE
     Dosage: 1 MG, QD
     Route: 048

REACTIONS (6)
  - Aphasia [Unknown]
  - Tremor [Unknown]
  - Hypokinesia [Unknown]
  - Nausea [Unknown]
  - Drug ineffective [Unknown]
  - Breath odour [Unknown]
